FAERS Safety Report 21544372 (Version 1)
Quarter: 2022Q4

REPORT INFORMATION
  Report Type: Spontaneous
  Country: CA (occurrence: CA)
  Receive Date: 20221102
  Receipt Date: 20221102
  Transmission Date: 20230113
  Serious: Yes (Death, Hospitalization)
  Sender: FDA-Public Use
  Company Number: CA-KARYOPHARM THERAPEUTICS, INC.-2022KPT000990

PATIENT

DRUGS (5)
  1. XPOVIO [Suspect]
     Active Substance: SELINEXOR
     Indication: Plasma cell myeloma
     Dosage: 100 MG, WEEKLY, FOR 3 WEEKS
     Route: 048
     Dates: start: 20220817, end: 20220912
  2. XPOVIO [Suspect]
     Active Substance: SELINEXOR
     Dosage: 80 MG, WEEKLY, FOR 5 WEEKS
     Route: 048
     Dates: start: 20220912, end: 20220929
  3. CYCLOPHOSPHAMIDE [Concomitant]
     Active Substance: CYCLOPHOSPHAMIDE
  4. DEXAMETHASONE [Concomitant]
     Active Substance: DEXAMETHASONE
     Indication: Plasma cell myeloma
     Dosage: 20 MG, WEEKLY
  5. ONDANSETRON [Concomitant]
     Active Substance: ONDANSETRON

REACTIONS (15)
  - Death [Fatal]
  - Fatigue [Unknown]
  - Decreased appetite [Recovering/Resolving]
  - Sepsis [Unknown]
  - Paraesthesia [Recovered/Resolved]
  - Lethargy [Unknown]
  - Somnolence [Unknown]
  - Nausea [Recovered/Resolved]
  - Confusional state [Unknown]
  - Weight decreased [Unknown]
  - Asthenia [Recovering/Resolving]
  - Diarrhoea [Unknown]
  - Dehydration [Unknown]
  - Dyspnoea [Unknown]
  - Vomiting [Unknown]

NARRATIVE: CASE EVENT DATE: 20220801
